FAERS Safety Report 16197051 (Version 2)
Quarter: 2019Q2

REPORT INFORMATION
  Report Type: Spontaneous
  Country: US (occurrence: US)
  Receive Date: 20190415
  Receipt Date: 20190514
  Transmission Date: 20190711
  Serious: No
  Sender: FDA-Public Use
  Company Number: US-PFIZER INC-2019148936

PATIENT
  Age: 65 Year
  Sex: Male

DRUGS (2)
  1. NOVOCAINE [Suspect]
     Active Substance: PROCAINE
     Dosage: UNK
     Route: 048
  2. AMPICILLIN SODIUM. [Suspect]
     Active Substance: AMPICILLIN SODIUM
     Dosage: UNK

REACTIONS (1)
  - Drug hypersensitivity [Unknown]
